FAERS Safety Report 15690302 (Version 1)
Quarter: 2018Q4

REPORT INFORMATION
  Report Type: Report from Study
  Country: ES (occurrence: ES)
  Receive Date: 20181205
  Receipt Date: 20181205
  Transmission Date: 20190205
  Serious: Yes (Death, Hospitalization, Other)
  Sender: FDA-Public Use
  Company Number: ES-SA-2018SA022877

PATIENT
  Age: 85 Year
  Sex: Male
  Weight: 60 kg

DRUGS (1)
  1. INSULIN GLARGINE [Suspect]
     Active Substance: INSULIN GLARGINE
     Indication: TYPE 2 DIABETES MELLITUS
     Dosage: 20 IU,QD
     Route: 058
     Dates: start: 20160809

REACTIONS (3)
  - Chronic obstructive pulmonary disease [Unknown]
  - Colon cancer [Fatal]
  - Anxiety [Unknown]

NARRATIVE: CASE EVENT DATE: 20170815
